FAERS Safety Report 17892694 (Version 1)
Quarter: 2020Q2

REPORT INFORMATION
  Report Type: Other
  Country: CA (occurrence: CA)
  Receive Date: 20200613
  Receipt Date: 20200613
  Transmission Date: 20200714
  Serious: Yes (Other)
  Sender: FDA-Public Use
  Company Number: CA-NUVO PHARMACEUTICALS INC-2085760

PATIENT
  Age: 19 Month
  Sex: Male

DRUGS (9)
  1. SODIUM POLYSTYRENE SULFONATE. [Suspect]
     Active Substance: SODIUM POLYSTYRENE SULFONATE
     Indication: PRODUCT USED FOR UNKNOWN INDICATION
  2. ALPHACALCIDOL [Concomitant]
     Active Substance: ALFACALCIDOL
  3. POLYETHYLENE GLYCOL [Concomitant]
     Active Substance: POLYETHYLENE GLYCOLS
  4. CALCIUM CARBONATE. [Suspect]
     Active Substance: CALCIUM CARBONATE
  5. SEVELEMER HYDROCHLORIDE [Concomitant]
  6. ELEMENTAL IRON [Concomitant]
  7. CALCIUM CARBONATE WITH VITAMIN D (CHOLECALCIFEROL) [Concomitant]
     Active Substance: CALCIUM CARBONATE\CHOLECALCIFEROL
  8. DARBEPOIETIN ALPHA [Concomitant]
  9. MULTIVITAMIN [Concomitant]
     Active Substance: VITAMINS

REACTIONS (2)
  - Metabolic alkalosis [Recovered/Resolved]
  - Drug interaction [Recovered/Resolved]
